FAERS Safety Report 6013393-9 (Version None)
Quarter: 2008Q4

REPORT INFORMATION
  Report Type: 
  Country: None (occurrence: None)
  Receive Date: 20081218
  Receipt Date: 20081218
  Transmission Date: 20090506
  Serious: Yes (Other)
  Sender: FDA-Public Use
  Company Number: None

PATIENT
  Age: 37 Year
  Sex: Female
  Weight: 91.6266 kg

DRUGS (1)
  1. LUTERA WATSON [Suspect]
     Indication: CONTRACEPTION
     Dosage: 1 TABLET BY MOUTH DAILY
     Route: 048
     Dates: start: 20071224

REACTIONS (6)
  - AMENORRHOEA [None]
  - CONDITION AGGRAVATED [None]
  - HYPOAESTHESIA [None]
  - MENSTRUAL DISORDER [None]
  - PYREXIA [None]
  - VISION BLURRED [None]
